FAERS Safety Report 9349295 (Version 3)
Quarter: 2014Q1

REPORT INFORMATION
  Report Type: Spontaneous
  Country: US (occurrence: US)
  Receive Date: 20130614
  Receipt Date: 20140320
  Transmission Date: 20141002
  Serious: Yes (Hospitalization)
  Sender: FDA-Public Use
  Company Number: US-B.I. PHARMACEUTICALS,INC./RIDGEFIELD-2013-BI-16413BP

PATIENT
  Sex: Male
  Weight: 140.16 kg

DRUGS (8)
  1. PRADAXA [Suspect]
     Indication: ATRIAL FIBRILLATION
     Dosage: 300 MG
     Route: 065
     Dates: start: 20120220, end: 20120229
  2. MULTIVITAMIN [Concomitant]
     Route: 065
  3. ATENOLOL [Concomitant]
     Dosage: 100 MG
     Route: 065
  4. METFORMIN [Concomitant]
     Dosage: 2000 MG
     Route: 065
     Dates: start: 2003
  5. ENALAPRIL [Concomitant]
     Dosage: 20 MG
     Route: 065
     Dates: start: 2000
  6. SIMVASTATIN [Concomitant]
     Dosage: 40 MG
     Route: 065
     Dates: start: 2003, end: 2013
  7. HYDROCHLOROTHIAZIDE [Concomitant]
     Dosage: 25 MG
     Route: 065
  8. GLIMEPIRIDE [Concomitant]
     Dosage: 2 MG
     Route: 065
     Dates: start: 2000

REACTIONS (1)
  - Gastrointestinal haemorrhage [Unknown]
